FAERS Safety Report 16991334 (Version 2)
Quarter: 2019Q4

REPORT INFORMATION
  Report Type: Spontaneous
  Country: US (occurrence: US)
  Receive Date: 20191104
  Receipt Date: 20191210
  Transmission Date: 20200122
  Serious: No
  Sender: FDA-Public Use
  Company Number: US-BAUSCH-BL-2019-058935

PATIENT
  Sex: Female
  Weight: 70.82 kg

DRUGS (2)
  1. TRETINOIN. [Suspect]
     Active Substance: TRETINOIN
     Indication: PRODUCT USE IN UNAPPROVED INDICATION
  2. TRETINOIN. [Suspect]
     Active Substance: TRETINOIN
     Indication: SKIN HYPERPIGMENTATION
     Dosage: FREQUENCY: DAY AND NIGHT, DOSE WAS JUST A LITTLE BIT
     Route: 065
     Dates: start: 201909, end: 20191021

REACTIONS (4)
  - Product use in unapproved indication [Unknown]
  - Skin discolouration [Unknown]
  - Erythema [Recovered/Resolved]
  - Skin burning sensation [Unknown]

NARRATIVE: CASE EVENT DATE: 2019
